FAERS Safety Report 7705044-X (Version None)
Quarter: 2011Q3

REPORT INFORMATION
  Report Type: 
  Country: None (occurrence: None)
  Receive Date: 20110823
  Receipt Date: 20110531
  Transmission Date: 20111222
  Serious: Yes (Hospitalization, Other)
  Sender: FDA-Public Use
  Company Number: PHHY2011US34797

PATIENT
  Sex: Female

DRUGS (2)
  1. GLEEVEC [Suspect]
     Dosage: 200 MG, UNK
     Route: 048
     Dates: start: 20100816
  2. GLEEVEC [Suspect]
     Indication: CHRONIC MYELOID LEUKAEMIA
     Dosage: 400 MG, DAILY
     Route: 048
     Dates: start: 20091119, end: 20100601

REACTIONS (7)
  - DEPRESSION [None]
  - PERIORBITAL OEDEMA [None]
  - MENTAL DISORDER [None]
  - ANXIETY [None]
  - LEUKOPENIA [None]
  - NAUSEA [None]
  - BLOOD COUNT ABNORMAL [None]
